FAERS Safety Report 21105306 (Version 1)
Quarter: 2022Q3

REPORT INFORMATION
  Report Type: Spontaneous
  Country: US (occurrence: None)
  Receive Date: 20220719
  Receipt Date: 20220719
  Transmission Date: 20221027
  Serious: Yes (unspecified)
  Sender: FDA-Public Use
  Company Number: None

PATIENT
  Age: 30 Year
  Sex: Male
  Weight: 87.75 kg

DRUGS (1)
  1. CITROMA MAGNESIUM CITRATE [Suspect]
     Active Substance: MAGNESIUM CITRATE
     Indication: Constipation
     Dosage: OTHER QUANTITY : 1 OUNCE(S);?
     Route: 048
     Dates: start: 20220601, end: 20220601

REACTIONS (5)
  - Dyspepsia [None]
  - Abdominal pain upper [None]
  - Abdominal distension [None]
  - Irritable bowel syndrome [None]
  - Dyschezia [None]

NARRATIVE: CASE EVENT DATE: 20220601
